FAERS Safety Report 5812203-X (Version None)
Quarter: 2008Q3

REPORT INFORMATION
  Report Type: 
  Country: None (occurrence: None)
  Receive Date: 20080716
  Receipt Date: 20080715
  Transmission Date: 20090109
  Serious: Yes (Hospitalization)
  Sender: FDA-Public Use
  Company Number: AU-GENENTECH-255786

PATIENT
  Sex: Male

DRUGS (24)
  1. BLINDED APOMAB (PRO95780) [Suspect]
     Indication: NON-SMALL CELL LUNG CANCER
     Dosage: 620 UNK, UNK
     Route: 042
     Dates: start: 20080108
  2. BLINDED BEVACIZUMAB [Suspect]
     Indication: NON-SMALL CELL LUNG CANCER
     Dosage: 620 UNK, UNK
     Route: 042
     Dates: start: 20080108
  3. CARBOPLATIN [Suspect]
     Indication: NON-SMALL CELL LUNG CANCER
     Dosage: 620 UNK, UNK
     Route: 042
     Dates: start: 20080108
  4. PACLITAXEL [Suspect]
     Indication: NON-SMALL CELL LUNG CANCER
     Dosage: 620 UNK, UNK
     Route: 042
     Dates: start: 20080108
  5. BLINDED PLACEBO [Suspect]
     Indication: NON-SMALL CELL LUNG CANCER
     Dosage: 620 UNK, UNK
     Route: 042
     Dates: start: 20080108
  6. BEVACIZUMAB [Suspect]
     Indication: NON-SMALL CELL LUNG CANCER
     Dosage: 930 UNK, UNK
     Route: 042
     Dates: start: 20080108
  7. CARBOPLATIN [Suspect]
     Indication: NON-SMALL CELL LUNG CANCER
     Dosage: 650 UNK, UNK
     Route: 042
     Dates: start: 20080108
  8. PACLITAXEL [Suspect]
     Indication: NON-SMALL CELL LUNG CANCER
     Dosage: 350 UNK, UNK
     Route: 042
     Dates: start: 20080108
  9. AGAROL [Concomitant]
     Indication: DRUG USE FOR UNKNOWN INDICATION
     Dosage: 20 MG, PRN
  10. COLOXYL SENNA [Concomitant]
     Indication: CONSTIPATION
     Dosage: 2 TABLET, BID
     Dates: start: 20080110
  11. DEXAMETHASONE [Concomitant]
     Indication: PREMEDICATION
     Dosage: 20 MG, UNK
     Dates: start: 20080107
  12. DEXAMETHASONE [Concomitant]
     Dosage: 4 MG, UNK
     Dates: start: 20080109
  13. ENDEP [Concomitant]
     Indication: DRUG USE FOR UNKNOWN INDICATION
     Dosage: 10 MG, UNK
  14. ENDONE [Concomitant]
     Indication: PAIN
     Dosage: 5 MG, PRN
     Dates: start: 20080104
  15. KAPANOL [Concomitant]
     Indication: DRUG USE FOR UNKNOWN INDICATION
     Dosage: 30 MG, UNK
  16. GOANNA OIL LINIMENT [Concomitant]
     Indication: PAIN
     Dates: start: 20080101, end: 20080116
  17. LORATADINE [Concomitant]
     Indication: PREMEDICATION
     Dosage: 10 MG, UNK
     Dates: start: 20080108
  18. MAXOLON [Concomitant]
     Indication: DRUG USE FOR UNKNOWN INDICATION
     Dosage: 10 MG, PRN
  19. MOVICOL [Concomitant]
     Indication: CONSTIPATION
     Dosage: UNK, PRN
     Dates: start: 20080107
  20. NEXIUM [Concomitant]
     Indication: DRUG USE FOR UNKNOWN INDICATION
     Dosage: 40 MG, QD
  21. ONDANSETRON [Concomitant]
     Indication: PROPHYLAXIS
     Dosage: 8 MG, UNK
     Dates: start: 20080108
  22. PANADEINE [Concomitant]
     Indication: PAIN
     Dosage: 2 TABLET, QID
     Dates: start: 20080105, end: 20080116
  23. RANITIDINE HCL [Concomitant]
     Indication: PREMEDICATION
     Dosage: 50 MG, UNK
     Route: 042
     Dates: start: 20080108
  24. VOLTAREN [Concomitant]
     Indication: DRUG USE FOR UNKNOWN INDICATION

REACTIONS (1)
  - CONFUSIONAL STATE [None]
